FAERS Safety Report 13854083 (Version 1)
Quarter: 2017Q3

REPORT INFORMATION
  Report Type: Spontaneous
  Country: US (occurrence: US)
  Receive Date: 20170809
  Receipt Date: 20170809
  Transmission Date: 20171127
  Serious: Yes (Other)
  Sender: FDA-Public Use
  Company Number: US-CELGENEUS-USA-20170802374

PATIENT
  Age: 68 Year
  Sex: Female

DRUGS (4)
  1. CARFILZOMIB [Concomitant]
     Active Substance: CARFILZOMIB
     Indication: PRODUCT USED FOR UNKNOWN INDICATION
     Route: 065
  2. REVLIMID [Suspect]
     Active Substance: LENALIDOMIDE
     Indication: OFF LABEL USE
     Route: 048
  3. KYPROLIS [Suspect]
     Active Substance: CARFILZOMIB
     Route: 041
  4. KYPROLIS [Suspect]
     Active Substance: CARFILZOMIB
     Indication: OFF LABEL USE
     Route: 041

REACTIONS (1)
  - Cardiac failure congestive [Unknown]
